FAERS Safety Report 14098363 (Version 1)
Quarter: 2017Q4

REPORT INFORMATION
  Report Type: Spontaneous
  Country: US (occurrence: US)
  Receive Date: 20171016
  Receipt Date: 20171016
  Transmission Date: 20180321
  Serious: No
  Sender: FDA-Public Use
  Company Number: US-AMGEN-USASP2017001684

PATIENT
  Age: 71 Year
  Sex: Female
  Weight: 53.97 kg

DRUGS (3)
  1. PROLIA [Suspect]
     Active Substance: DENOSUMAB
     Indication: OSTEOPENIA
     Dosage: UNK
     Route: 065
     Dates: start: 201505
  2. CALCIUM [Concomitant]
     Active Substance: CALCIUM
     Dosage: UNK
  3. VITAMIN D [Concomitant]
     Active Substance: CHOLECALCIFEROL
     Dosage: 3000 IU TO 2000 IU, UNK

REACTIONS (13)
  - Dyspnoea [Unknown]
  - Sinus disorder [Unknown]
  - Blood calcium increased [Unknown]
  - Gingival disorder [Recovering/Resolving]
  - Off label use [Unknown]
  - Vitamin D increased [Unknown]
  - Hypercholesterolaemia [Not Recovered/Not Resolved]
  - Endodontic procedure [Unknown]
  - Hypertension [Unknown]
  - Viral infection [Unknown]
  - Agitation [Unknown]
  - Tooth infection [Unknown]
  - Drug dose omission [Unknown]

NARRATIVE: CASE EVENT DATE: 201612
